FAERS Safety Report 16358176 (Version 2)
Quarter: 2019Q2

REPORT INFORMATION
  Report Type: Report from Study
  Country: US (occurrence: US)
  Receive Date: 20190527
  Receipt Date: 20190603
  Transmission Date: 20190711
  Serious: No
  Sender: FDA-Public Use
  Company Number: PHHY2019US120200

PATIENT
  Age: 62 Year
  Sex: Female

DRUGS (1)
  1. GILENYA [Suspect]
     Active Substance: FINGOLIMOD HYDROCHLORIDE
     Indication: MULTIPLE SCLEROSIS
     Dosage: UNK, QD
     Route: 048

REACTIONS (14)
  - Cough [Unknown]
  - Asthenia [Unknown]
  - Hypoaesthesia [Unknown]
  - Low density lipoprotein increased [Unknown]
  - Visual impairment [Unknown]
  - Pyrexia [Unknown]
  - Pain [Unknown]
  - Spinal osteoarthritis [Not Recovered/Not Resolved]
  - High density lipoprotein increased [Unknown]
  - Influenza [Unknown]
  - Chills [Unknown]
  - Oropharyngeal pain [Unknown]
  - Influenza like illness [Unknown]
  - Paraesthesia [Not Recovered/Not Resolved]

NARRATIVE: CASE EVENT DATE: 20140930
